FAERS Safety Report 5427255-9 (Version None)
Quarter: 2007Q3

REPORT INFORMATION
  Report Type: 
  Country: None (occurrence: None)
  Receive Date: 20070823
  Receipt Date: 20070806
  Transmission Date: 20080115
  Serious: Yes (Other)
  Sender: FDA-Public Use
  Company Number: 6036735

PATIENT
  Age: 48 Year
  Sex: Female

DRUGS (5)
  1. ENALAPRIL (ENALAPRIL) [Suspect]
     Indication: HYPERTENSION
     Dosage: 20 MG (20 MG, 1 IN 1 D)
  2. AMLODIPINE [Suspect]
     Indication: HYPERTENSION
     Dosage: 5 MG (5 MG, 1 IN 1 D)
  3. ORLISTAT (ORLISTAT) [Suspect]
     Indication: DRUG USE FOR UNKNOWN INDICATION
     Dosage: 240 MG (120 MG, 2  IN 1 D)
  4. HYDROCHLOROTHIAZIDE [Suspect]
     Indication: HYPERTENSION
  5. LOSARTAN POTASSIUM [Suspect]
     Indication: HYPERTENSION

REACTIONS (2)
  - DRUG INTERACTION [None]
  - HYPERTENSION [None]
